FAERS Safety Report 23671033 (Version 1)
Quarter: 2024Q1

REPORT INFORMATION
  Report Type: Spontaneous
  Country: BR (occurrence: BR)
  Receive Date: 20240326
  Receipt Date: 20240326
  Transmission Date: 20240409
  Serious: Yes (Other)
  Sender: FDA-Public Use
  Company Number: BR-GLAXOSMITHKLINE-BR2021AMR104437

PATIENT

DRUGS (2)
  1. BENLYSTA [Suspect]
     Active Substance: BELIMUMAB
     Indication: Systemic lupus erythematosus
     Dosage: 120 MG
     Route: 042
     Dates: start: 20210303
  2. BENLYSTA [Suspect]
     Active Substance: BELIMUMAB
     Dosage: 600 MG, Q4W, 5 OF 120 MG
     Route: 042
     Dates: start: 20210303

REACTIONS (6)
  - Heart valve operation [Recovering/Resolving]
  - Ingrowing nail [Recovered/Resolved]
  - Tooth disorder [Unknown]
  - Inappropriate schedule of product administration [Unknown]
  - Product availability issue [Unknown]
  - Product dose omission issue [Unknown]

NARRATIVE: CASE EVENT DATE: 20210601
